FAERS Safety Report 19849422 (Version 1)
Quarter: 2021Q3

REPORT INFORMATION
  Report Type: Spontaneous
  Country: GB (occurrence: GB)
  Receive Date: 20210917
  Receipt Date: 20210917
  Transmission Date: 20211014
  Serious: Yes (Other)
  Sender: FDA-Public Use
  Company Number: GB-TEVA-2021-GB-1953591

PATIENT
  Age: 18 Year
  Sex: Female
  Weight: 65 kg

DRUGS (5)
  1. FLUOXETINE [Concomitant]
     Active Substance: FLUOXETINE HYDROCHLORIDE
     Dosage: 1 DOSAGE FORMS DAILY; ONE PER DAY ALONGSIDE 20MG TO MAKE A DOSE OF 30...
     Dates: start: 20210420
  2. LEVOFLOXACIN. [Suspect]
     Active Substance: LEVOFLOXACIN
     Indication: LOWER RESPIRATORY TRACT INFECTION
     Dosage: 500MG
     Route: 002
     Dates: start: 20210902, end: 20210903
  3. SYMBICORT [Concomitant]
     Active Substance: BUDESONIDE\FORMOTEROL FUMARATE DIHYDRATE
     Dosage: 4 DOSAGE FORMS DAILY; PUFFS
     Dates: start: 20201110
  4. SALBUTAMOL [Concomitant]
     Active Substance: ALBUTEROL
     Dosage: 2DF
     Route: 055
     Dates: start: 20201110
  5. FLUOXETINE [Concomitant]
     Active Substance: FLUOXETINE HYDROCHLORIDE
     Dosage: 1 DOSAGE FORMS DAILY; ONE PER DAY ALONGSIDE 20MG TO MAKE A DOSE OF 30...
     Dates: start: 20210420

REACTIONS (4)
  - Urticaria [Recovering/Resolving]
  - Lip swelling [Unknown]
  - Pyrexia [Unknown]
  - Stevens-Johnson syndrome [Unknown]

NARRATIVE: CASE EVENT DATE: 20210902
